FAERS Safety Report 7969272-0 (Version None)
Quarter: 2011Q4

REPORT INFORMATION
  Report Type: 
  Country: None (occurrence: None)
  Receive Date: 20111209
  Receipt Date: 20111209
  Transmission Date: 20120403
  Serious: Yes (Other)
  Sender: FDA-Public Use
  Company Number: RU-ROCHE-1018748

PATIENT
  Sex: Male

DRUGS (8)
  1. METHYLPREDNISOLONE [Concomitant]
     Indication: MICROSCOPIC POLYANGIITIS
     Dates: start: 20111014, end: 20111124
  2. MABTHERA [Suspect]
     Dates: start: 20111122
  3. MABTHERA [Suspect]
     Indication: MICROSCOPIC POLYANGIITIS
     Route: 042
     Dates: start: 20111114, end: 20111129
  4. MABTHERA [Suspect]
     Dates: start: 20111129
  5. PREDNISOLONE [Concomitant]
     Indication: MICROSCOPIC POLYANGIITIS
     Route: 048
  6. BACTRIM [Concomitant]
     Route: 048
     Dates: start: 20111202
  7. IMMUNE GLOBULIN NOS [Concomitant]
     Indication: MICROSCOPIC POLYANGIITIS
     Route: 042
     Dates: start: 20111103, end: 20111105
  8. CYCLOPHOSPHAMIDE [Concomitant]
     Indication: MICROSCOPIC POLYANGIITIS
     Dates: start: 20111014, end: 20111124

REACTIONS (4)
  - AGRANULOCYTOSIS [None]
  - OFF LABEL USE [None]
  - LEUKOPENIA [None]
  - RED BLOOD CELL SEDIMENTATION RATE INCREASED [None]
